FAERS Safety Report 5720508-6 (Version None)
Quarter: 2008Q2

REPORT INFORMATION
  Report Type: 
  Country: None (occurrence: None)
  Receive Date: 20080423
  Receipt Date: 20080124
  Transmission Date: 20081010
  Serious: Yes (Death)
  Sender: FDA-Public Use
  Company Number: 254896

PATIENT

DRUGS (1)
  1. AVASTIN [Suspect]
     Indication: CERVIX CARCINOMA

REACTIONS (1)
  - GASTROINTESTINAL PERFORATION [None]
